FAERS Safety Report 7597566-X (Version None)
Quarter: 2011Q3

REPORT INFORMATION
  Report Type: 
  Country: None (occurrence: None)
  Receive Date: 20110708
  Receipt Date: 20110627
  Transmission Date: 20111222
  Serious: Yes (Hospitalization)
  Sender: FDA-Public Use
  Company Number: JP-ROCHE-764449

PATIENT
  Sex: Male

DRUGS (10)
  1. NOVORAPID [Suspect]
     Indication: DIABETES MELLITUS
     Route: 058
  2. PREDNISOLONE [Suspect]
     Route: 048
     Dates: start: 20100610, end: 20101124
  3. BASEN [Suspect]
     Indication: DIABETES MELLITUS
     Route: 048
  4. LANTUS [Suspect]
     Indication: DIABETES MELLITUS
     Route: 058
  5. PREDNISOLONE [Suspect]
     Route: 048
     Dates: start: 20100318, end: 20100609
  6. PREDNISOLONE [Suspect]
     Route: 048
     Dates: start: 20101125
  7. PROGRAF [Concomitant]
     Route: 048
     Dates: start: 20080322, end: 20090707
  8. PREDNISOLONE [Suspect]
     Indication: RHEUMATOID ARTHRITIS
     Route: 048
     Dates: start: 20040508, end: 20091125
  9. PREDNISOLONE [Suspect]
     Route: 048
     Dates: start: 20091126, end: 20100317
  10. ACTEMRA [Suspect]
     Indication: RHEUMATOID ARTHRITIS
     Route: 041
     Dates: start: 20090908, end: 20110205

REACTIONS (3)
  - WHITE BLOOD CELL COUNT DECREASED [None]
  - INFECTIOUS PLEURAL EFFUSION [None]
  - PLEURISY [None]
